FAERS Safety Report 24907272 (Version 1)
Quarter: 2025Q1

REPORT INFORMATION
  Report Type: Report from Study
  Country: US (occurrence: US)
  Receive Date: 20250130
  Receipt Date: 20250130
  Transmission Date: 20250408
  Serious: Yes (Other)
  Sender: JOHNSON AND JOHNSON
  Company Number: US-JNJFOC-20250156528

PATIENT

DRUGS (1)
  1. TECVAYLI [Suspect]
     Active Substance: TECLISTAMAB-CQYV
     Indication: Plasma cell myeloma refractory
     Route: 065

REACTIONS (10)
  - Hepatotoxicity [Unknown]
  - Febrile neutropenia [Unknown]
  - Neutropenia [Unknown]
  - Immune effector cell-associated neurotoxicity syndrome [Unknown]
  - Cytokine release syndrome [Unknown]
  - Infection [Unknown]
  - Thrombocytopenia [Unknown]
  - Anaemia [Unknown]
  - Neuropathy peripheral [Unknown]
  - Gastrointestinal toxicity [Unknown]
